FAERS Safety Report 7522571-9 (Version None)
Quarter: 2011Q2

REPORT INFORMATION
  Report Type: 
  Country: None (occurrence: None)
  Receive Date: 20110603
  Receipt Date: 20110524
  Transmission Date: 20111010
  Serious: Yes (Other)
  Sender: FDA-Public Use
  Company Number: US-ROCHE-780241

PATIENT
  Sex: Female

DRUGS (2)
  1. KLONOPIN [Suspect]
     Indication: PANIC DISORDER
     Dosage: OTHER INDICATION: ANXIETY
     Route: 048
  2. KLONOPIN [Suspect]
     Dosage: INCREASED DOSAGE
     Route: 048
     Dates: start: 20110410

REACTIONS (3)
  - THYROID DISORDER [None]
  - PANIC ATTACK [None]
  - SOMNOLENCE [None]
